FAERS Safety Report 5846838-5 (Version None)
Quarter: 2008Q3

REPORT INFORMATION
  Report Type: 
  Country: None (occurrence: None)
  Receive Date: 20080815
  Receipt Date: 20080807
  Transmission Date: 20090109
  Serious: Yes (Other)
  Sender: FDA-Public Use
  Company Number: PHBS2008NL05368

PATIENT
  Age: 17 Year
  Sex: Male
  Weight: 53 kg

DRUGS (3)
  1. BACLOFEN [Suspect]
     Indication: CEREBRAL PALSY
     Dosage: 100 UG/DAY
     Route: 037
  2. BACLOFEN [Suspect]
     Indication: MUSCLE SPASTICITY
     Dosage: 415 UG/DAY
     Route: 037
  3. BACLOFEN [Suspect]
     Dosage: 456 UG/DAY
     Route: 037

REACTIONS (5)
  - CONSTIPATION [None]
  - DIZZINESS [None]
  - GRAND MAL CONVULSION [None]
  - PALLOR [None]
  - URINARY HESITATION [None]
